FAERS Safety Report 6057093-8 (Version None)
Quarter: 2009Q1

REPORT INFORMATION
  Report Type: 
  Country: None (occurrence: None)
  Receive Date: 20090129
  Receipt Date: 20090122
  Transmission Date: 20090719
  Serious: Yes (Disabling, Other)
  Sender: FDA-Public Use
  Company Number: GB-ABBOTT-08P-167-0483869-00

PATIENT
  Sex: Male
  Weight: 93 kg

DRUGS (3)
  1. HUMIRA [Suspect]
     Indication: PSORIATIC ARTHROPATHY
     Dates: start: 20080117
  2. HUMIRA [Suspect]
     Indication: PSORIASIS
     Dates: end: 20080410
  3. HUMIRA [Suspect]
     Indication: ARTHRITIS

REACTIONS (2)
  - PARAESTHESIA [None]
  - PERONEAL NERVE PALSY [None]
